FAERS Safety Report 12921105 (Version 1)
Quarter: 2016Q4

REPORT INFORMATION
  Report Type: Spontaneous
  Country: US (occurrence: US)
  Receive Date: 20161107
  Receipt Date: 20161107
  Transmission Date: 20170207
  Serious: Yes (Other)
  Sender: FDA-Public Use
  Company Number: US-AKORN PHARMACEUTICALS-2016AKN00768

PATIENT
  Age: 9 Year
  Sex: Female

DRUGS (7)
  1. MELPHALAN [Concomitant]
     Active Substance: MELPHALAN
     Indication: GANGLIONEUROBLASTOMA
     Route: 065
  2. 131 I-METAIODOBENZYLGUANIDINE [Concomitant]
     Indication: GANGLIONEUROBLASTOMA
     Dosage: 12 MCI/KG
     Route: 065
  3. ETOPOSIDE. [Concomitant]
     Active Substance: ETOPOSIDE
     Indication: GANGLIONEUROBLASTOMA
     Route: 065
  4. FENRETINIDE [Suspect]
     Active Substance: FENRETINIDE
     Indication: GANGLIONEUROBLASTOMA
     Dosage: 800 MG (2475 MG/M^2/DAY), 3X/DAY FOR 7 DAYS
     Route: 048
  5. CARBOPLATIN. [Concomitant]
     Active Substance: CARBOPLATIN
     Indication: GANGLIONEUROBLASTOMA
     Route: 065
  6. FENRETINIDE [Suspect]
     Active Substance: FENRETINIDE
     Indication: METASTATIC NEOPLASM
  7. ISOTRETINOIN [Suspect]
     Active Substance: ISOTRETINOIN
     Indication: GANGLIONEUROBLASTOMA
     Dosage: CUMULATIVE DOSE: 13,440 MG/M^2, AFTER SIX COURSES
     Route: 065

REACTIONS (2)
  - Epiphyses premature fusion [Not Recovered/Not Resolved]
  - Limb asymmetry [Not Recovered/Not Resolved]
